FAERS Safety Report 16589587 (Version 1)
Quarter: 2019Q3

REPORT INFORMATION
  Report Type: Spontaneous
  Country: NL (occurrence: NL)
  Receive Date: 20190718
  Receipt Date: 20190718
  Transmission Date: 20191004
  Serious: Yes (Other)
  Sender: FDA-Public Use
  Company Number: NL-ACCORD-139042

PATIENT
  Age: 52 Year
  Sex: Male

DRUGS (10)
  1. FLUOROURACIL. [Suspect]
     Active Substance: FLUOROURACIL
     Indication: ACINAR CELL CARCINOMA OF PANCREAS
     Dosage: EVERY 2 WEEKS, GIVEN AS A 46 HOURS CONTINUOUS INFUSION
  2. IRINOTECAN [Suspect]
     Active Substance: IRINOTECAN
     Indication: ACINAR CELL CARCINOMA OF PANCREAS
     Dosage: EVERY 2 WEEKS ?ON ADJUSTED DOSE
  3. OXALIPLATIN. [Suspect]
     Active Substance: OXALIPLATIN
     Indication: METASTASES TO PERITONEUM
     Dosage: 85 MG/M2 OF BODY-SURFACE AREA. EVERY 2 WEEKS
  4. FOLINIC ACID [Suspect]
     Active Substance: LEUCOVORIN
     Indication: ACINAR CELL CARCINOMA OF PANCREAS
     Dosage: EVERY 2 WEEKS?ON ADJUSTED DOSE
  5. FOLINIC ACID [Suspect]
     Active Substance: LEUCOVORIN
     Indication: INTRADUCTAL PAPILLARY MUCINOUS NEOPLASM
     Dosage: EVERY 2 WEEKS
  6. OXALIPLATIN. [Suspect]
     Active Substance: OXALIPLATIN
     Indication: METASTASES TO PERITONEUM
     Dosage: EVERY 2 WEEK
  7. FLUOROURACIL. [Suspect]
     Active Substance: FLUOROURACIL
     Indication: ACINAR CELL CARCINOMA OF PANCREAS
     Dosage: EVERY 2 WEEKS, GIVEN AS BOLUS
  8. FOLINIC ACID [Suspect]
     Active Substance: LEUCOVORIN
     Indication: METASTASES TO SKIN
     Dosage: ON ADJUSTED DOSE
  9. OXALIPLATIN. [Suspect]
     Active Substance: OXALIPLATIN
     Indication: METASTASES TO LIVER
     Dosage: ON ADJUSTED DOSE
  10. FLUOROURACIL. [Suspect]
     Active Substance: FLUOROURACIL
     Indication: METASTASES TO LYMPH NODES
     Dosage: ON ADJUSTED DOSE

REACTIONS (3)
  - Neuropathy peripheral [Unknown]
  - Haematotoxicity [Unknown]
  - Loss of personal independence in daily activities [Unknown]
